FAERS Safety Report 6726387-2 (Version None)
Quarter: 2010Q2

REPORT INFORMATION
  Report Type: 
  Country: None (occurrence: None)
  Receive Date: 20100514
  Receipt Date: 20100506
  Transmission Date: 20101027
  Serious: Yes (Disabling)
  Sender: FDA-Public Use
  Company Number: B0650914A

PATIENT
  Age: 70 Year
  Sex: Male

DRUGS (8)
  1. CLOPIDOGREL [Suspect]
     Dosage: 75MG PER DAY
  2. ACETYLSALICYLIC ACID [Suspect]
     Dosage: 75MG PER DAY
  3. ERYTHROMYCIN [Suspect]
     Indication: CELLULITIS
     Dosage: 1000MG PER DAY
     Route: 048
  4. METRONIDAZOLE [Suspect]
     Dosage: 1200MG PER DAY
     Route: 048
  5. CIPROFLOXACIN [Suspect]
     Dosage: 1500MG PER DAY
  6. WARFARIN SODIUM [Suspect]
     Indication: PULMONARY EMBOLISM
  7. MEROPENEM [Suspect]
     Dosage: 4G PER DAY
  8. TEICOPLANIN [Suspect]
     Dosage: 400MG PER DAY
     Route: 030

REACTIONS (4)
  - DRUG INTERACTION [None]
  - HYPHAEMA [None]
  - INTERNATIONAL NORMALISED RATIO INCREASED [None]
  - INTRAOCULAR PRESSURE INCREASED [None]
